FAERS Safety Report 9152306 (Version 2)
Quarter: 2013Q3

REPORT INFORMATION
  Report Type: Report from Study
  Country: CO (occurrence: CO)
  Receive Date: 20130308
  Receipt Date: 20130930
  Transmission Date: 20140515
  Serious: Yes (Hospitalization)
  Sender: FDA-Public Use
  Company Number: CO-ROCHE-1198415

PATIENT
  Age: 39 Year
  Sex: Female

DRUGS (2)
  1. MIRCERA [Suspect]
     Indication: NEPHROGENIC ANAEMIA
     Route: 058
     Dates: start: 20120824
  2. MIRCERA [Suspect]
     Indication: RENAL FAILURE CHRONIC

REACTIONS (1)
  - Hepatomegaly [Recovered/Resolved]
